FAERS Safety Report 6443010-5 (Version None)
Quarter: 2009Q4

REPORT INFORMATION
  Report Type: 
  Country: None (occurrence: None)
  Receive Date: 20091117
  Receipt Date: 20090226
  Transmission Date: 20100525
  Serious: No
  Sender: FDA-Public Use
  Company Number: US-ABBOTT-09P-163-0559989-00

PATIENT
  Sex: Female
  Weight: 66.284 kg

DRUGS (8)
  1. TEVETEN HCT [Suspect]
     Indication: HYPERTENSION
     Dosage: 600/12.5 QD
     Route: 048
     Dates: start: 20050101, end: 20070101
  2. DIOVAN [Concomitant]
     Indication: HYPERTENSION
     Dosage: 160/12.5 QD
     Route: 048
     Dates: start: 20070101
  3. LEVOTHYROXINE SODIUM [Concomitant]
     Indication: HYPOTHYROIDISM
     Route: 048
  4. ADVICOR [Concomitant]
     Indication: BLOOD CHOLESTEROL INCREASED
     Dosage: 500/20 QD
     Route: 048
  5. CENTRUM SILVER [Concomitant]
     Indication: VITAMIN SUPPLEMENTATION
     Route: 048
  6. ASPIRIN [Concomitant]
     Indication: FLUSHING
     Route: 048
  7. GLUCOSAMINE + CHONDROITIN [Concomitant]
     Indication: OSTEOARTHRITIS
     Dosage: 1500/1200 2 IN 1 DAY
     Route: 048
  8. CALCIUM WITH VITAMIN D [Concomitant]
     Indication: VITAMIN SUPPLEMENTATION
     Route: 048

REACTIONS (2)
  - COELIAC DISEASE [None]
  - DIARRHOEA [None]
